FAERS Safety Report 20916759 (Version 2)
Quarter: 2022Q4

REPORT INFORMATION
  Report Type: Report from Study
  Country: US (occurrence: US)
  Receive Date: 20220605
  Receipt Date: 20221028
  Transmission Date: 20230112
  Serious: Yes (Life-Threatening, Hospitalization, Other)
  Sender: FDA-Public Use
  Company Number: US-NOVARTISPH-NVSC2022US126235

PATIENT
  Age: 52 Year
  Sex: Female
  Weight: 71.4 kg

DRUGS (44)
  1. ISCALIMAB [Suspect]
     Active Substance: ISCALIMAB
     Indication: Liver transplant
     Dosage: 1806 MG ONCE
     Route: 058
     Dates: start: 20201002
  2. ISCALIMAB [Suspect]
     Active Substance: ISCALIMAB
     Dosage: 924 MG ONCE
     Route: 058
     Dates: start: 20201009
  3. ISCALIMAB [Suspect]
     Active Substance: ISCALIMAB
     Dosage: 600 MG, ONCE IN 2 WEEKS
     Route: 058
     Dates: start: 20201021
  4. TACROLIMUS [Suspect]
     Active Substance: TACROLIMUS
     Indication: Liver transplant
     Dosage: 4 MG, QD
     Route: 065
     Dates: start: 20201002
  5. MYCOPHENOLATE MOFETIL [Suspect]
     Active Substance: MYCOPHENOLATE MOFETIL
     Indication: Liver transplant
     Dosage: 1000 MG, QD
     Route: 042
     Dates: start: 20201002
  6. MAGNESIUM SULFATE [Concomitant]
     Active Substance: MAGNESIUM SULFATE
     Indication: Hypomagnesaemia
     Dosage: UNK
     Route: 065
     Dates: start: 20220515, end: 20220515
  7. MAGNESIUM SULFATE [Concomitant]
     Active Substance: MAGNESIUM SULFATE
     Dosage: UNK
     Route: 065
     Dates: start: 20220530, end: 20220530
  8. PANTOPRAZOLE [Concomitant]
     Active Substance: PANTOPRAZOLE
     Indication: Gastrooesophageal reflux disease
     Dosage: UNK
     Route: 065
     Dates: start: 20220519, end: 20220529
  9. PANTOPRAZOLE [Concomitant]
     Active Substance: PANTOPRAZOLE
     Dosage: UNK
     Route: 065
     Dates: start: 20220530, end: 20220602
  10. PANTOPRAZOLE [Concomitant]
     Active Substance: PANTOPRAZOLE
     Dosage: UNK
     Route: 065
     Dates: start: 20220514, end: 20220518
  11. HYDROXYZINE [Concomitant]
     Active Substance: HYDROXYZINE HYDROCHLORIDE
     Indication: Pruritus
     Dosage: UNK
     Route: 065
     Dates: start: 20220514, end: 20220516
  12. HYDROXYZINE [Concomitant]
     Active Substance: HYDROXYZINE HYDROCHLORIDE
     Dosage: UNK
     Route: 065
     Dates: start: 20220518, end: 20220529
  13. RAMELTEON [Concomitant]
     Active Substance: RAMELTEON
     Indication: Insomnia
     Dosage: UNK
     Route: 065
     Dates: start: 20220514, end: 20220514
  14. RAMELTEON [Concomitant]
     Active Substance: RAMELTEON
     Dosage: UNK
     Route: 065
     Dates: start: 20220515, end: 20220529
  15. CELLCEPT [Concomitant]
     Active Substance: MYCOPHENOLATE MOFETIL
     Indication: Liver transplant
     Dosage: UNK
     Route: 065
     Dates: start: 20220514
  16. TACROLIMUS [Concomitant]
     Active Substance: TACROLIMUS
     Indication: Liver transplant
     Dosage: UNK
     Route: 065
     Dates: start: 20220514, end: 20220514
  17. TACROLIMUS [Concomitant]
     Active Substance: TACROLIMUS
     Dosage: UNK
     Route: 065
     Dates: start: 20220515, end: 20220529
  18. ASPIRIN [Concomitant]
     Active Substance: ASPIRIN
     Indication: Prophylaxis
     Dosage: UNK
     Route: 065
     Dates: start: 20200924, end: 20220603
  19. METHYLPREDNISOLONE [Concomitant]
     Active Substance: METHYLPREDNISOLONE
     Indication: Liver transplant
     Dosage: UNK
     Route: 065
     Dates: start: 20220514, end: 20220515
  20. METHYLPREDNISOLONE [Concomitant]
     Active Substance: METHYLPREDNISOLONE
     Indication: Hyperbilirubinaemia
  21. LOVENOX [Concomitant]
     Active Substance: ENOXAPARIN SODIUM
     Indication: Thrombosis prophylaxis
     Dosage: UNK
     Route: 065
     Dates: start: 20220514, end: 20220518
  22. ACETAMINOPHEN [Concomitant]
     Active Substance: ACETAMINOPHEN
     Indication: Back pain
     Dosage: UNK
     Route: 065
     Dates: start: 20220514, end: 20220517
  23. PREDNISONE [Concomitant]
     Active Substance: PREDNISONE
     Indication: Liver transplant
     Dosage: UNK
     Route: 065
     Dates: start: 20220516, end: 20220529
  24. PREDNISONE [Concomitant]
     Active Substance: PREDNISONE
     Indication: Hyperbilirubinaemia
  25. POTASSIUM CHLORIDE [Concomitant]
     Active Substance: POTASSIUM CHLORIDE
     Indication: Hypokalaemia
     Dosage: UNK
     Route: 065
     Dates: start: 20220515, end: 20220515
  26. POTASSIUM CHLORIDE [Concomitant]
     Active Substance: POTASSIUM CHLORIDE
     Dosage: UNK
     Route: 065
     Dates: start: 20220530, end: 20220530
  27. GADOTERATE MEGLUMINE [Concomitant]
     Active Substance: GADOTERATE MEGLUMINE
     Indication: Product used for unknown indication
     Dosage: UNK
     Route: 065
     Dates: start: 20220515, end: 20220515
  28. CALCIUM CARBONATE [Concomitant]
     Active Substance: CALCIUM CARBONATE
     Indication: Gastrooesophageal reflux disease
     Dosage: UNK
     Route: 065
     Dates: start: 20220517, end: 20220517
  29. ALBUMIN HUMAN [Concomitant]
     Active Substance: ALBUMIN HUMAN
     Indication: Hypoalbuminaemia
     Dosage: UNK
     Route: 065
     Dates: start: 20220517, end: 20220518
  30. ALBUMIN HUMAN [Concomitant]
     Active Substance: ALBUMIN HUMAN
     Dosage: UNK
     Route: 065
     Dates: start: 20220530, end: 20220530
  31. ZOFRAN [Concomitant]
     Active Substance: ONDANSETRON HYDROCHLORIDE
     Indication: Nausea
     Dosage: UNK
     Route: 065
     Dates: start: 20220517, end: 20220517
  32. ZOFRAN [Concomitant]
     Active Substance: ONDANSETRON HYDROCHLORIDE
     Dosage: UNK
     Route: 065
     Dates: start: 20220518, end: 20220529
  33. ATORVASTATIN [Concomitant]
     Active Substance: ATORVASTATIN
     Indication: Hypertriglyceridaemia
     Dosage: UNK
     Route: 065
     Dates: start: 20220518, end: 20220529
  34. CALCIUM CHLORIDE [Concomitant]
     Active Substance: CALCIUM CHLORIDE
     Indication: Hypocalcaemia
     Dosage: UNK
     Route: 065
     Dates: start: 20220530, end: 20220530
  35. CALCIUM GLUCONATE [Concomitant]
     Active Substance: CALCIUM GLUCONATE
     Indication: Hypocalcaemia
     Dosage: UNK
     Route: 065
     Dates: start: 20220530, end: 20220530
  36. CEFTRIAXONE [Concomitant]
     Active Substance: CEFTRIAXONE
     Indication: Infection prophylaxis
     Dosage: UNK
     Route: 065
     Dates: start: 20220530, end: 20220530
  37. CEFTRIAXONE [Concomitant]
     Active Substance: CEFTRIAXONE
     Dosage: UNK
     Route: 065
     Dates: start: 20220601, end: 20220603
  38. METOCLOPRAMIDE [Concomitant]
     Active Substance: METOCLOPRAMIDE
     Indication: Nausea
     Dosage: UNK
     Route: 065
     Dates: start: 20220530, end: 20220530
  39. METOCLOPRAMIDE [Concomitant]
     Active Substance: METOCLOPRAMIDE
     Indication: Vomiting
  40. SODIUM CHLORIDE [Concomitant]
     Active Substance: SODIUM CHLORIDE
     Indication: Transfusion
     Dosage: UNK
     Route: 065
     Dates: start: 20220530, end: 20220530
  41. SODIUM CHLORIDE [Concomitant]
     Active Substance: SODIUM CHLORIDE
     Indication: Hypokalaemia
  42. DEXTROSE LACTATED RINGER^S [Concomitant]
     Indication: Resuscitation
     Dosage: UNK
     Route: 065
     Dates: start: 20220530, end: 20220531
  43. LEVOPHED [Concomitant]
     Active Substance: NOREPINEPHRINE BITARTRATE
     Indication: Hypotension
     Dosage: UNK
     Route: 065
  44. MI-ACID [Concomitant]
     Indication: Gastrooesophageal reflux disease
     Dosage: UNK
     Route: 065
     Dates: start: 20220517, end: 20220517

REACTIONS (1)
  - Gastrointestinal haemorrhage [Recovered/Resolved]

NARRATIVE: CASE EVENT DATE: 20220530
